FAERS Safety Report 24189114 (Version 2)
Quarter: 2024Q3

REPORT INFORMATION
  Report Type: Spontaneous
  Country: BR (occurrence: BR)
  Receive Date: 20240808
  Receipt Date: 20240822
  Transmission Date: 20241016
  Serious: Yes (Other)
  Sender: CELLTRION
  Company Number: BR-CELLTRION INC.-2024BR018634

PATIENT

DRUGS (5)
  1. INFLIXIMAB [Suspect]
     Active Substance: INFLIXIMAB
     Indication: Crohn^s disease
     Dosage: 90 MG (1ML) EVERY 8 WEEKS
     Route: 042
     Dates: start: 20221031
  2. INFLIXIMAB [Suspect]
     Active Substance: INFLIXIMAB
     Indication: Crohn^s disease
     Dosage: 90 MG - 1 ML EVERY 2 MONTHS
     Route: 058
     Dates: start: 20240728
  3. BENICAR [Concomitant]
     Active Substance: OLMESARTAN MEDOXOMIL
     Indication: Hypertension
     Dosage: 1 PILL PER DAY, 3 YEARS AGO
     Route: 048
  4. PURAN [Concomitant]
     Active Substance: LEVOTHYROXINE SODIUM
     Indication: Hypothyroidism
     Dosage: 1 PILL PER DAY
     Route: 048
  5. PURAN [Concomitant]
     Active Substance: LEVOTHYROXINE SODIUM
     Indication: Hyperthyroidism

REACTIONS (12)
  - Nasopharyngitis [Not Recovered/Not Resolved]
  - Insomnia [Unknown]
  - Pneumonia [Not Recovered/Not Resolved]
  - Malaise [Unknown]
  - Productive cough [Not Recovered/Not Resolved]
  - Muscle spasms [Unknown]
  - Nausea [Unknown]
  - Diarrhoea [Unknown]
  - Constipation [Unknown]
  - Insurance issue [Unknown]
  - Therapy interrupted [Unknown]
  - Intentional product use issue [Unknown]

NARRATIVE: CASE EVENT DATE: 20240728
